FAERS Safety Report 23276344 (Version 2)
Quarter: 2024Q1

REPORT INFORMATION
  Report Type: Report from Study
  Country: US (occurrence: US)
  Receive Date: 20231208
  Receipt Date: 20240104
  Transmission Date: 20240410
  Serious: No
  Sender: FDA-Public Use
  Company Number: US-BIOVITRUM-2023-US-015575

PATIENT
  Age: 64 Year
  Sex: Female

DRUGS (1)
  1. KINERET [Suspect]
     Active Substance: ANAKINRA
     Indication: Rheumatoid arthritis
     Dosage: DAILY
     Route: 058
     Dates: start: 20231003

REACTIONS (13)
  - Alopecia [Unknown]
  - Brain fog [Unknown]
  - Mass [Unknown]
  - Blood pressure increased [Unknown]
  - Pruritus [Unknown]
  - Product dose omission issue [Unknown]
  - Injection site reaction [Unknown]
  - Sinusitis [Unknown]
  - Urinary tract infection [Unknown]
  - Influenza [Unknown]
  - Illness [Unknown]
  - Headache [Unknown]
  - Abdominal pain upper [Unknown]
